FAERS Safety Report 10304813 (Version 3)
Quarter: 2014Q3

REPORT INFORMATION
  Report Type: Report from Study
  Country: US (occurrence: US)
  Receive Date: 20140715
  Receipt Date: 20140722
  Transmission Date: 20150326
  Serious: Yes (Hospitalization)
  Sender: FDA-Public Use
  Company Number: PHEH2014US011946

PATIENT
  Sex: Male

DRUGS (2)
  1. AFINITOR [Suspect]
     Active Substance: EVEROLIMUS
     Indication: NEUROENDOCRINE TUMOUR
     Dosage: 10 MG, QD
     Route: 048
     Dates: start: 201301
  2. SANDOSTATIN LAR DEPOT [Suspect]
     Active Substance: OCTREOTIDE ACETATE
     Route: 030
     Dates: start: 2009, end: 20140620

REACTIONS (5)
  - Aphagia [Unknown]
  - Malaise [Unknown]
  - Diarrhoea [Unknown]
  - Dehydration [Unknown]
  - Drug ineffective [Unknown]
